FAERS Safety Report 8222901-9 (Version None)
Quarter: 2012Q1

REPORT INFORMATION
  Report Type: 
  Country: None (occurrence: None)
  Receive Date: 20120320
  Receipt Date: 20120307
  Transmission Date: 20120608
  Serious: Yes (Life-Threatening, Other)
  Sender: FDA-Public Use
  Company Number: CHPA2012US004274

PATIENT
  Age: 54 Year
  Sex: Male

DRUGS (3)
  1. EXCEDRIN (MIGRAINE) [Suspect]
     Indication: ARTHRALGIA
     Dosage: 2 DF, TID
     Route: 048
     Dates: start: 20090108
  2. ANTIHYPERTENSIVE DRUGS [Concomitant]
     Indication: HYPERTENSION
  3. DRUG USED IN DIABETES [Concomitant]
     Indication: DIABETES MELLITUS

REACTIONS (6)
  - OFF LABEL USE [None]
  - OVERDOSE [None]
  - SKIN EXFOLIATION [None]
  - ERYTHEMA [None]
  - THERAPEUTIC RESPONSE UNEXPECTED [None]
  - THROAT TIGHTNESS [None]
